FAERS Safety Report 5643961-5 (Version None)
Quarter: 2008Q1

REPORT INFORMATION
  Report Type: 
  Country: None (occurrence: None)
  Receive Date: 20080226
  Receipt Date: 20080212
  Transmission Date: 20080703
  Serious: Yes (Hospitalization)
  Sender: FDA-Public Use
  Company Number: SPI200800070

PATIENT
  Age: 82 Year
  Sex: Female
  Weight: 61.2 kg

DRUGS (7)
  1. AMITIZA [Suspect]
     Indication: CONSTIPATION
     Dosage: 24 MCG, BID, ORAL
     Route: 048
     Dates: start: 20080101, end: 20080212
  2. AMITIZA [Suspect]
     Indication: CONSTIPATION
     Dosage: 24 MCG, BID, ORAL
     Route: 048
     Dates: start: 20080223
  3. AVAPRO [Concomitant]
  4. VYTORIN [Concomitant]
  5. DIABETA [Concomitant]
  6. NEURONTIN [Concomitant]
  7. ATIVAN [Concomitant]

REACTIONS (10)
  - ABDOMINAL PAIN LOWER [None]
  - ANOREXIA [None]
  - BOWEL MOVEMENT IRREGULARITY [None]
  - CHILLS [None]
  - DIARRHOEA [None]
  - DIVERTICULITIS [None]
  - HEADACHE [None]
  - MALAISE [None]
  - NASOPHARYNGITIS [None]
  - NAUSEA [None]
